FAERS Safety Report 8591404-4 (Version None)
Quarter: 2012Q3

REPORT INFORMATION
  Report Type: 
  Country: None (occurrence: None)
  Receive Date: 20120801
  Receipt Date: 20120717
  Transmission Date: 20120928
  Serious: Yes (Death)
  Sender: FDA-Public Use
  Company Number: JPI-P-022560

PATIENT
  Age: 62 Year
  Sex: Male

DRUGS (2)
  1. XYREM [Suspect]
     Indication: NARCOLEPSY
     Dosage: 4.5 GM (2.25 GM,2 IN 1 D), ORAL: ORAL : 9 GM (4.5 GM,2 IN 1 D), ORAL
     Route: 048
     Dates: start: 20071212
  2. XYREM [Suspect]
     Indication: NARCOLEPSY
     Dosage: 4.5 GM (2.25 GM,2 IN 1 D), ORAL: ORAL : 9 GM (4.5 GM,2 IN 1 D), ORAL
     Route: 048
     Dates: start: 20080131

REACTIONS (4)
  - COUGH [None]
  - UMBILICAL HERNIA [None]
  - CONTUSION [None]
  - FALL [None]
